FAERS Safety Report 5310521-5 (Version None)
Quarter: 2007Q2

REPORT INFORMATION
  Report Type: 
  Country: None (occurrence: None)
  Receive Date: 20070427
  Receipt Date: 20070415
  Transmission Date: 20071010
  Serious: Yes (Death)
  Sender: FDA-Public Use
  Company Number: GB-GENENTECH-240323

PATIENT
  Sex: Female
  Weight: 84 kg

DRUGS (5)
  1. BEVACIZUMAB [Suspect]
     Indication: COLON CANCER
     Dosage: 630 UNIT, Q3W
     Route: 042
     Dates: start: 20070115
  2. CAPECITABINE [Suspect]
     Indication: COLON CANCER
     Dosage: 2000 UNIT, BID
     Route: 048
     Dates: start: 20070115
  3. CARBIMAZOLE [Concomitant]
     Indication: DRUG USE FOR UNKNOWN INDICATION
     Dates: start: 20061115, end: 20070405
  4. BENDROFLUMETHIAZIDE [Concomitant]
     Indication: DRUG USE FOR UNKNOWN INDICATION
     Dates: end: 20070405
  5. AMLODIPINE [Concomitant]
     Indication: DRUG USE FOR UNKNOWN INDICATION
     Dates: end: 20070405

REACTIONS (2)
  - CARDIAC ARREST [None]
  - FALL [None]
